FAERS Safety Report 11411915 (Version 1)
Quarter: 2015Q3

REPORT INFORMATION
  Report Type: Spontaneous
  Country: US (occurrence: US)
  Receive Date: 20150821
  Receipt Date: 20150821
  Transmission Date: 20151125
  Serious: No
  Sender: FDA-Public Use
  Company Number: US-ELI_LILLY_AND_COMPANY-US201108002549

PATIENT
  Age: 91 Year
  Sex: Female

DRUGS (6)
  1. HUMULIN N [Suspect]
     Active Substance: INSULIN HUMAN
     Dosage: 20 U, EACH EVENING
  2. HUMULIN N [Suspect]
     Active Substance: INSULIN HUMAN
     Dosage: 18 U, EACH MORNING
  3. HUMULIN N [Suspect]
     Active Substance: INSULIN HUMAN
     Dosage: 20 U, EACH EVENING
  4. HUMULIN N [Suspect]
     Active Substance: INSULIN HUMAN
     Dosage: 18 U, EACH MORNING
  5. HUMULIN N [Suspect]
     Active Substance: INSULIN HUMAN
     Indication: DIABETES MELLITUS
     Dosage: 18 U, EACH MORNING
  6. HUMULIN N [Suspect]
     Active Substance: INSULIN HUMAN
     Dosage: 20 U, EACH EVENING

REACTIONS (3)
  - Hearing impaired [Unknown]
  - Visual impairment [Not Recovered/Not Resolved]
  - Incorrect dose administered [Unknown]

NARRATIVE: CASE EVENT DATE: 20110722
